FAERS Safety Report 18522710 (Version 1)
Quarter: 2020Q4

REPORT INFORMATION
  Report Type: Spontaneous
  Country: GB (occurrence: GB)
  Receive Date: 20201119
  Receipt Date: 20201119
  Transmission Date: 20210114
  Serious: Yes (Hospitalization, Other)
  Sender: FDA-Public Use
  Company Number: GB-PERRIGO-20GB016084

PATIENT

DRUGS (5)
  1. PARACETAMOL [Suspect]
     Active Substance: ACETAMINOPHEN
     Indication: PAIN
     Route: 048
  2. AMITRIPTYLINE HYDROCHLORIDE 5 MG/ML  00427/0116 [Suspect]
     Active Substance: AMITRIPTYLINE HYDROCHLORIDE
     Indication: PRODUCT USED FOR UNKNOWN INDICATION
     Route: 065
  3. AMITRIPTYLINE HYDROCHLORIDE 5 MG/ML  00427/0116 [Suspect]
     Active Substance: AMITRIPTYLINE HYDROCHLORIDE
     Indication: PRODUCT USED FOR UNKNOWN INDICATION
     Route: 065
  4. SERTRALINE [Concomitant]
     Active Substance: SERTRALINE HYDROCHLORIDE
  5. DICLOFENAC [Concomitant]
     Active Substance: DICLOFENAC

REACTIONS (8)
  - Chills [Recovered/Resolved with Sequelae]
  - Mental disorder [Unknown]
  - Communication disorder [Unknown]
  - Dizziness [Recovered/Resolved with Sequelae]
  - Feeling abnormal [Unknown]
  - Feeling of body temperature change [Unknown]
  - Balance disorder [Unknown]
  - Disturbance in attention [Unknown]
